FAERS Safety Report 23272900 (Version 1)
Quarter: 2023Q4

REPORT INFORMATION
  Report Type: Spontaneous
  Country: US (occurrence: None)
  Receive Date: 20231206
  Receipt Date: 20231206
  Transmission Date: 20240110
  Serious: Yes (Hospitalization)
  Sender: FDA-Public Use
  Company Number: None

PATIENT
  Age: 24 Year
  Sex: Female
  Weight: 51 kg

DRUGS (14)
  1. GAMUNEX-C [Suspect]
     Active Substance: HUMAN IMMUNOGLOBULIN G
     Indication: Polychondritis
     Dosage: FREQUENCY : EVERY OTHER WEEK;?
     Route: 042
     Dates: start: 20230816
  2. AZITHROMYCIN [Concomitant]
     Active Substance: AZITHROMYCIN
  3. FERROUS SULFATE [Concomitant]
     Active Substance: FERROUS SULFATE
  4. FOLIC ACID [Concomitant]
     Active Substance: FOLIC ACID
  5. KETOTIFEN [Concomitant]
     Active Substance: KETOTIFEN
  6. NALTREXONE [Concomitant]
     Active Substance: NALTREXONE
  7. NIFEDIPINE [Concomitant]
     Active Substance: NIFEDIPINE
  8. PILOCARPINE [Concomitant]
     Active Substance: PILOCARPINE
  9. POTASSIUM CHLORIDE [Concomitant]
     Active Substance: POTASSIUM CHLORIDE
  10. PREDNISONE [Concomitant]
     Active Substance: PREDNISONE
  11. PYRIDOSTIGMINE [Concomitant]
     Active Substance: PYRIDOSTIGMINE
  12. ZAFIRLUKAST [Concomitant]
     Active Substance: ZAFIRLUKAST
  13. SPIRONOLACTONE [Concomitant]
     Active Substance: SPIRONOLACTONE
  14. RITUXIMAB [Concomitant]
     Active Substance: RITUXIMAB
     Dates: end: 20230531

REACTIONS (13)
  - Infusion related reaction [None]
  - Palpitations [None]
  - Blood pressure increased [None]
  - Nausea [None]
  - Vomiting [None]
  - Speech disorder [None]
  - Cough [None]
  - Use of accessory respiratory muscles [None]
  - Back pain [None]
  - Palpitations [None]
  - Wheezing [None]
  - Throat irritation [None]
  - Lip pruritus [None]

NARRATIVE: CASE EVENT DATE: 20230816
